FAERS Safety Report 15482591 (Version 1)
Quarter: 2018Q4

REPORT INFORMATION
  Report Type: Spontaneous
  Country: FR (occurrence: FR)
  Receive Date: 20181010
  Receipt Date: 20181010
  Transmission Date: 20190205
  Serious: Yes (Other)
  Sender: FDA-Public Use
  Company Number: FR-PFIZER INC-2018403546

PATIENT
  Sex: Female

DRUGS (3)
  1. CODOLIPRANE [Suspect]
     Active Substance: ACETAMINOPHEN\CODEINE PHOSPHATE
     Dosage: UNK
  2. TRAMADOL LP ZENTIVA [Suspect]
     Active Substance: TRAMADOL HYDROCHLORIDE
  3. ALPRAZOLAM. [Suspect]
     Active Substance: ALPRAZOLAM
     Dosage: UNK

REACTIONS (7)
  - Headache [Unknown]
  - Suicide attempt [Unknown]
  - Drug abuse [Unknown]
  - Rhinorrhoea [Unknown]
  - Abdominal pain [Unknown]
  - Feeling abnormal [Unknown]
  - Withdrawal syndrome [Unknown]
